FAERS Safety Report 16497514 (Version 2)
Quarter: 2019Q3

REPORT INFORMATION
  Report Type: Spontaneous
  Country: HU (occurrence: HU)
  Receive Date: 20190628
  Receipt Date: 20190718
  Transmission Date: 20191004
  Serious: Yes (Hospitalization, Other)
  Sender: FDA-Public Use
  Company Number: HU-ALLERGAN-1926578US

PATIENT
  Sex: Female
  Weight: 52 kg

DRUGS (5)
  1. GAVISCON [Concomitant]
     Active Substance: ALUMINUM HYDROXIDE\MAGNESIUM CARBONATE
     Indication: GASTROOESOPHAGEAL REFLUX DISEASE
     Route: 065
  2. FEMIBION [Concomitant]
     Indication: PREGNANCY
     Route: 065
  3. MAGNEROT [Concomitant]
     Active Substance: MAGNESIUM
     Indication: PREGNANCY
     Route: 065
  4. CEFTAROLINE FOSAMIL - BP [Suspect]
     Active Substance: CEFTAROLINE FOSAMIL
     Indication: ENDOCARDITIS
     Dosage: 600 MG, 3X/DAY
     Route: 042
     Dates: start: 20190607, end: 20190614
  5. AMPICILLIN [Concomitant]
     Active Substance: AMPICILLIN
     Indication: ENDOCARDITIS
     Dosage: 4 G, TID
     Route: 042
     Dates: start: 20190607, end: 20190614

REACTIONS (9)
  - Heparin-induced thrombocytopenia [Unknown]
  - Premature labour [Unknown]
  - Uterine atony [Unknown]
  - Maternal exposure during pregnancy [Unknown]
  - Lung neoplasm malignant [Unknown]
  - Pleural effusion [Unknown]
  - Dyspnoea [Unknown]
  - Hydrothorax [Unknown]
  - Off label use [Unknown]
